FAERS Safety Report 7988925-1 (Version None)
Quarter: 2011Q4

REPORT INFORMATION
  Report Type: 
  Country: None (occurrence: None)
  Receive Date: 20111215
  Receipt Date: 20111215
  Transmission Date: 20120403
  Serious: No
  Sender: FDA-Public Use
  Company Number: None

PATIENT

DRUGS (2)
  1. ISOSORBIDE MONONITRATE [Suspect]
     Dosage: ORAL
     Route: 048
  2. METFORMIN HCL [Suspect]
     Dosage: ORAL
     Route: 048

REACTIONS (2)
  - PRODUCT COMMINGLING [None]
  - DRUG DISPENSING ERROR [None]
